FAERS Safety Report 5520913-7 (Version None)
Quarter: 2007Q4

REPORT INFORMATION
  Report Type: 
  Country: None (occurrence: None)
  Receive Date: 20071116
  Receipt Date: 20071116
  Transmission Date: 20080405
  Serious: Yes (Other)
  Sender: FDA-Public Use
  Company Number: None

PATIENT
  Age: 64 Year
  Sex: Female
  Weight: 54.4316 kg

DRUGS (2)
  1. ENBREL [Suspect]
     Indication: PSORIASIS
     Dosage: 50MG ID
     Route: 026
     Dates: start: 19970127, end: 20070709
  2. ENBREL [Suspect]
     Indication: PSORIATIC ARTHROPATHY
     Dosage: 50MG ID
     Route: 026
     Dates: start: 19970127, end: 20070709

REACTIONS (12)
  - ALOPECIA [None]
  - BALANCE DISORDER [None]
  - CONFUSIONAL STATE [None]
  - DIPLOPIA [None]
  - DISTURBANCE IN ATTENTION [None]
  - EXTENSOR PLANTAR RESPONSE [None]
  - MULTIPLE SCLEROSIS [None]
  - PARAESTHESIA [None]
  - RASH [None]
  - SPEECH DISORDER [None]
  - THROAT IRRITATION [None]
  - WALKING AID USER [None]
